FAERS Safety Report 7170089-8 (Version None)
Quarter: 2010Q4

REPORT INFORMATION
  Report Type: 
  Country: None (occurrence: None)
  Receive Date: 20101214
  Receipt Date: 20101214
  Transmission Date: 20110411
  Serious: No
  Sender: FDA-Public Use
  Company Number: None

PATIENT
  Age: 55 Year
  Sex: Female
  Weight: 58.9676 kg

DRUGS (1)
  1. SEROQUEL XR [Suspect]
     Dosage: 150 MG 1 PER DAY

REACTIONS (2)
  - ARTHRALGIA [None]
  - MYALGIA [None]
